FAERS Safety Report 7295443 (Version 2)
Quarter: 2014Q1

REPORT INFORMATION
  Report Type: Spontaneous
  Country: US (occurrence: None)
  Receive Date: 20100204
  Receipt Date: 20140123
  Transmission Date: 20141002
  Serious: Yes (Other)
  Sender: FDA-Public Use
  Company Number: 2009S1006295

PATIENT
  Age: 61 Year
  Sex: Female

DRUGS (1)
  1. SODIUM PHOSPHATE, DIBASIC\SODIUM PHOSPHATE, MONOBASIC, ANHYDROUS [Suspect]
     Indication: COLONOSCOPY
     Dosage: 90 ML; TOTAL; PO
     Route: 048
     Dates: start: 20060108, end: 20060108

REACTIONS (6)
  - Renal disorder [None]
  - Blood creatinine increased [None]
  - Renal failure acute [None]
  - Renal artery stenosis [None]
  - Renal tubular disorder [None]
  - Nephrocalcinosis [None]
